FAERS Safety Report 4533759-3 (Version None)
Quarter: 2004Q4

REPORT INFORMATION
  Report Type: 
  Country: None (occurrence: None)
  Receive Date: 20041206
  Receipt Date: 20041020
  Transmission Date: 20050328
  Serious: No
  Sender: FDA-Public Use
  Company Number: USA041081694

PATIENT
  Age: 70 Year
  Sex: Female
  Weight: 60 kg

DRUGS (3)
  1. CYMBALTA [Suspect]
     Indication: DEPRESSION
     Dosage: 60 MG/ 1 DAY
  2. AMBIEN [Concomitant]
  3. EFFEXOR [Concomitant]

REACTIONS (4)
  - ABDOMINAL PAIN UPPER [None]
  - COW'S MILK INTOLERANCE [None]
  - HEADACHE [None]
  - NAUSEA [None]
